FAERS Safety Report 9234446 (Version 1)
Quarter: 2013Q2

REPORT INFORMATION
  Report Type: Spontaneous
  Country: US (occurrence: US)
  Receive Date: 20130416
  Receipt Date: 20130416
  Transmission Date: 20140414
  Serious: No
  Sender: FDA-Public Use
  Company Number: US-ASTRAZENECA-2013SE18404

PATIENT
  Age: 62 Year
  Sex: Male
  Weight: 117.9 kg

DRUGS (6)
  1. NEXIUM [Suspect]
     Indication: GASTROOESOPHAGEAL REFLUX DISEASE
     Route: 048
     Dates: end: 2011
  2. NEXIUM [Suspect]
     Indication: HIATUS HERNIA
     Route: 048
     Dates: end: 2011
  3. OMEPRAZOLE [Suspect]
     Indication: GASTROOESOPHAGEAL REFLUX DISEASE
     Dosage: GENERIC
     Route: 048
     Dates: start: 2011, end: 201303
  4. OMEPRAZOLE [Suspect]
     Indication: HIATUS HERNIA
     Dosage: GENERIC
     Route: 048
     Dates: start: 2011, end: 201303
  5. BABY ASPIRIN [Concomitant]
  6. QUINAPRIL [Concomitant]

REACTIONS (2)
  - Dyspepsia [Unknown]
  - Vomiting [Unknown]
